FAERS Safety Report 5217934-0 (Version None)
Quarter: 2007Q1

REPORT INFORMATION
  Report Type: 
  Country: None (occurrence: None)
  Receive Date: 20061130
  Receipt Date: 20060921
  Transmission Date: 20070707
  Serious: Yes (Hospitalization)
  Sender: FDA-Public Use
  Company Number: US200609005060

PATIENT
  Age: 33 Year
  Sex: Female
  Weight: 74.8 kg

DRUGS (3)
  1. ZYPREXA [Suspect]
     Dates: start: 20040101, end: 20050101
  2. QUETIAPINE FUMARATE [Concomitant]
  3. MEDROXYPROGESTERONE [Concomitant]

REACTIONS (4)
  - DIABETES MELLITUS [None]
  - DIABETIC KETOACIDOSIS [None]
  - HYPERTENSION [None]
  - OBESITY [None]
